FAERS Safety Report 17719291 (Version 2)
Quarter: 2020Q2

REPORT INFORMATION
  Report Type: Spontaneous
  Country: US (occurrence: US)
  Receive Date: 20200428
  Receipt Date: 20200515
  Transmission Date: 20200714
  Serious: No
  Sender: FDA-Public Use
  Company Number: US-CELGENEUS-USA-20200407931

PATIENT
  Age: 59 Year
  Sex: Female
  Weight: 51.76 kg

DRUGS (1)
  1. REVLIMID [Suspect]
     Active Substance: LENALIDOMIDE
     Indication: PLASMA PROTEIN METABOLISM DISORDER
     Dosage: 25 MILLIGRAM
     Route: 048
     Dates: start: 20200401

REACTIONS (2)
  - Blood potassium increased [Unknown]
  - Rash [Unknown]

NARRATIVE: CASE EVENT DATE: 2020
